FAERS Safety Report 25772889 (Version 3)
Quarter: 2025Q3

REPORT INFORMATION
  Report Type: Report from Study
  Country: BR (occurrence: BR)
  Receive Date: 20250908
  Receipt Date: 20250917
  Transmission Date: 20251021
  Serious: Yes (Other)
  Sender: NOVARTIS
  Company Number: BR-002147023-NVSC2025BR139076

PATIENT
  Age: 66 Year
  Sex: Female
  Weight: 74 kg

DRUGS (23)
  1. KISQALI [Suspect]
     Active Substance: RIBOCICLIB SUCCINATE
     Indication: Invasive breast carcinoma
     Dosage: 3 DOSAGE FORM (3 WEEKS WITH A 1-WEEK  BREAK)
     Route: 048
     Dates: start: 20230826
  2. KISQALI [Suspect]
     Active Substance: RIBOCICLIB SUCCINATE
     Indication: Breast cancer stage IV
     Dosage: 1 TABLET ONCE A DAY PER 21 DAYS IN A ROW WITH PAUSE OF 7 DAYS
     Route: 048
  3. KISQALI [Suspect]
     Active Substance: RIBOCICLIB SUCCINATE
     Route: 065
     Dates: start: 20231128
  4. KISQALI [Suspect]
     Active Substance: RIBOCICLIB SUCCINATE
     Dosage: 1 TABLET ONCE A DAY PER 21 DAYS IN A ROW WITH PAUSE OF 7 DAYS
     Route: 048
     Dates: start: 20240105
  5. KISQALI [Suspect]
     Active Substance: RIBOCICLIB SUCCINATE
     Dosage: 3 DOSAGE FORM, QD (3 TABLET ONCE A DAY FOR 21 CONSECUTIVE DAYS, WITH A 7- DAY BREAK)
     Route: 048
  6. KISQALI [Suspect]
     Active Substance: RIBOCICLIB SUCCINATE
     Dosage: 2 DOSAGE FORM, QD
     Route: 048
  7. KISQALI [Suspect]
     Active Substance: RIBOCICLIB SUCCINATE
     Route: 065
  8. KISQALI [Suspect]
     Active Substance: RIBOCICLIB SUCCINATE
     Dosage: 1 DOSAGE FORM, QD (OTHER)
     Route: 065
  9. KISQALI [Suspect]
     Active Substance: RIBOCICLIB SUCCINATE
     Dosage: 2 DOSAGE FORM (3 WEEKS WITH A 1-WEEK  BREAK)
     Route: 048
     Dates: start: 202405
  10. KISQALI [Suspect]
     Active Substance: RIBOCICLIB SUCCINATE
     Dosage: 1 DOSAGE FORM, QD
     Route: 048
     Dates: start: 202412
  11. KISQALI [Suspect]
     Active Substance: RIBOCICLIB SUCCINATE
     Route: 065
     Dates: start: 20250318, end: 20250408
  12. KISQALI [Suspect]
     Active Substance: RIBOCICLIB SUCCINATE
     Dosage: 2 DOSAGE FORM (3 WEEKS WITH A 1-WEEK  BREAK)
     Route: 048
     Dates: start: 202505
  13. LETROZOLE [Suspect]
     Active Substance: LETROZOLE
     Indication: Breast cancer
     Route: 065
     Dates: start: 20230722
  14. LETROZOLE [Suspect]
     Active Substance: LETROZOLE
     Dosage: 1 DOSAGE FORM, QD CONTINUOUS
     Route: 065
  15. LETROZOLE [Suspect]
     Active Substance: LETROZOLE
     Route: 065
  16. XGEVA [Suspect]
     Active Substance: DENOSUMAB
     Indication: Product used for unknown indication
     Route: 065
     Dates: start: 20230726
  17. XGEVA [Suspect]
     Active Substance: DENOSUMAB
     Dosage: UNK, QMO
     Route: 058
     Dates: start: 20230826
  18. VITAMIN D NOS [Concomitant]
     Active Substance: CHOLECALCIFEROL\ERGOCALCIFEROL
     Indication: Product used for unknown indication
     Dosage: 7000 IU, BIW (02 TABLET PER WEEK)
     Route: 048
  19. Ossone [Concomitant]
     Indication: Product used for unknown indication
     Dosage: UNK, QD
     Route: 065
     Dates: start: 20230712
  20. LEVOTHYROXINE [Concomitant]
     Active Substance: LEVOTHYROXINE
     Indication: Hypothyroidism
     Route: 065
  21. SIMVASTATIN [Concomitant]
     Active Substance: SIMVASTATIN
     Indication: Product used for unknown indication
     Route: 065
  22. CALCIUM CITRATE MALATE [Concomitant]
     Active Substance: CALCIUM CITRATE MALATE
     Indication: Product used for unknown indication
     Route: 065
  23. ESCITALOPRAM [Concomitant]
     Active Substance: ESCITALOPRAM OXALATE
     Indication: Product used for unknown indication
     Route: 065

REACTIONS (42)
  - Leukopenia [Recovered/Resolved]
  - Leukopenia [Recovering/Resolving]
  - Autoimmune disorder [Unknown]
  - Neutropenia [Unknown]
  - Anaemia [Recovered/Resolved]
  - Nasopharyngitis [Recovered/Resolved]
  - Influenza [Recovering/Resolving]
  - Nausea [Not Recovered/Not Resolved]
  - Decreased immune responsiveness [Recovered/Resolved]
  - Asthenia [Recovered/Resolved]
  - Macrocytosis [Unknown]
  - Polychromasia [Unknown]
  - Neutrophil hypersegmented morphology present [Unknown]
  - Neutrophil count decreased [Recovering/Resolving]
  - Lymphocyte count abnormal [Recovering/Resolving]
  - Monocyte count abnormal [Recovering/Resolving]
  - Decreased immune responsiveness [Recovering/Resolving]
  - Platelet count decreased [Recovering/Resolving]
  - Drug eruption [Not Recovered/Not Resolved]
  - Hypoacusis [Unknown]
  - Anaemia [Not Recovered/Not Resolved]
  - Hyperchromasia [Not Recovered/Not Resolved]
  - Papule [Unknown]
  - Skin exfoliation [Unknown]
  - Pruritus [Recovered/Resolved]
  - Pigmentation disorder [Recovering/Resolving]
  - Red blood cell schistocytes present [Unknown]
  - Skin discolouration [Unknown]
  - Vitiligo [Recovered/Resolved]
  - Hypersensitivity [Recovered/Resolved]
  - Adverse drug reaction [Unknown]
  - Haematocrit decreased [Recovering/Resolving]
  - White blood cell count decreased [Not Recovered/Not Resolved]
  - Mean cell haemoglobin increased [Not Recovered/Not Resolved]
  - Mean cell volume increased [Not Recovered/Not Resolved]
  - Mean cell haemoglobin concentration increased [Recovered/Resolved]
  - Mean cell haemoglobin concentration increased [Not Recovered/Not Resolved]
  - Neutrophil percentage decreased [Not Recovered/Not Resolved]
  - Lymphocyte percentage increased [Recovered/Resolved]
  - Lymphocyte percentage increased [Not Recovered/Not Resolved]
  - Monocyte percentage increased [Not Recovered/Not Resolved]
  - Red blood cell count abnormal [Recovering/Resolving]

NARRATIVE: CASE EVENT DATE: 20231020
